FAERS Safety Report 7378766-0 (Version None)
Quarter: 2011Q1

REPORT INFORMATION
  Report Type: 
  Country: None (occurrence: None)
  Receive Date: 20110328
  Receipt Date: 20110321
  Transmission Date: 20110831
  Serious: Yes (Hospitalization)
  Sender: FDA-Public Use
  Company Number: FR-BRISTOL-MYERS SQUIBB COMPANY-15625106

PATIENT
  Age: 86 Year
  Sex: Female

DRUGS (8)
  1. COUMADIN [Suspect]
     Indication: ATRIAL FIBRILLATION
     Dosage: 1 DF:  1.5 UNIT NOS. STRENGTH-2MG.
     Route: 048
  2. KARDEGIC [Concomitant]
     Route: 048
  3. MOVIPREP [Concomitant]
     Dosage: MOVICOL (MACROGOL 3350),
     Route: 048
  4. LASIX [Concomitant]
     Route: 048
  5. TARDYFERON [Concomitant]
     Route: 048
  6. DIGOXIN [Concomitant]
     Route: 048
  7. LEVOTHYROX [Concomitant]
     Indication: THYROIDECTOMY
     Dosage: 1
     Route: 048
  8. OGASTORO [Concomitant]
     Route: 048

REACTIONS (2)
  - APHASIA [None]
  - HAEMATURIA [None]
